FAERS Safety Report 11914001 (Version 1)
Quarter: 2016Q1

REPORT INFORMATION
  Report Type: Report from Study
  Country: US (occurrence: US)
  Receive Date: 20160113
  Receipt Date: 20160113
  Transmission Date: 20160526
  Serious: Yes (Hospitalization)
  Sender: FDA-Public Use
  Company Number: US-BIOGEN-2016BI00169504

PATIENT
  Sex: Female

DRUGS (1)
  1. AVONEX [Suspect]
     Active Substance: INTERFERON BETA-1A
     Indication: MULTIPLE SCLEROSIS
     Route: 065
     Dates: end: 20110101

REACTIONS (6)
  - Central nervous system lesion [Unknown]
  - Vertigo [Recovered/Resolved with Sequelae]
  - Amnesia [Not Recovered/Not Resolved]
  - Pneumonia [Recovered/Resolved]
  - Monoplegia [Unknown]
  - Bradyarrhythmia [Unknown]
